FAERS Safety Report 12970993 (Version 1)
Quarter: 2016Q4

REPORT INFORMATION
  Report Type: Spontaneous
  Country: US (occurrence: US)
  Receive Date: 20161123
  Receipt Date: 20161123
  Transmission Date: 20170207
  Serious: No
  Sender: FDA-Public Use
  Company Number: US-JAZZ-2015-US-002402

PATIENT
  Sex: Male

DRUGS (13)
  1. XYREM [Suspect]
     Active Substance: SODIUM OXYBATE
     Dosage: 1 G, BID
     Route: 048
     Dates: start: 201607
  2. VITAMIN B12 [Concomitant]
     Active Substance: CYANOCOBALAMIN
  3. NEXIUM [Concomitant]
     Active Substance: ESOMEPRAZOLE MAGNESIUM
  4. RAPAFLO [Concomitant]
     Active Substance: SILODOSIN
  5. XYREM [Suspect]
     Active Substance: SODIUM OXYBATE
     Dosage: 1 G, BID
     Route: 048
     Dates: start: 201512, end: 2016
  6. FISH OIL [Concomitant]
     Active Substance: FISH OIL
  7. LIPITOR [Concomitant]
     Active Substance: ATORVASTATIN CALCIUM
  8. RANITIDINE. [Concomitant]
     Active Substance: RANITIDINE
  9. MULTIVITAMINS WITH IRON [Concomitant]
     Active Substance: IRON\VITAMINS
  10. ASPIRIN. [Concomitant]
     Active Substance: ASPIRIN
  11. AVODART [Concomitant]
     Active Substance: DUTASTERIDE
  12. XYREM [Suspect]
     Active Substance: SODIUM OXYBATE
     Indication: SPASMODIC DYSPHONIA
     Dosage: 2.25 G, BID
     Route: 048
     Dates: start: 201407, end: 201512
  13. KLONOPIN [Concomitant]
     Active Substance: CLONAZEPAM

REACTIONS (2)
  - Therapeutic response unexpected [Unknown]
  - Pre-existing condition improved [Unknown]
